FAERS Safety Report 9189163 (Version 4)
Quarter: 2013Q3

REPORT INFORMATION
  Report Type: Spontaneous
  Country: US (occurrence: US)
  Receive Date: 20130326
  Receipt Date: 20130917
  Transmission Date: 20140515
  Serious: Yes (Hospitalization, Other)
  Sender: FDA-Public Use
  Company Number: US-BIOGENIDEC-2013BI026737

PATIENT
  Sex: Female

DRUGS (1)
  1. TYSABRI [Suspect]
     Indication: MULTIPLE SCLEROSIS
     Route: 042
     Dates: start: 20100508, end: 20130109

REACTIONS (5)
  - Staphylococcal infection [Unknown]
  - Cellulitis [Not Recovered/Not Resolved]
  - Musculoskeletal disorder [Unknown]
  - Nerve injury [Unknown]
  - Pain in extremity [Unknown]
